FAERS Safety Report 7389861-4 (Version None)
Quarter: 2011Q2

REPORT INFORMATION
  Report Type: 
  Country: None (occurrence: None)
  Receive Date: 20110401
  Receipt Date: 20110330
  Transmission Date: 20111010
  Serious: Yes (Hospitalization)
  Sender: FDA-Public Use
  Company Number: DE-EISAI INC-E2090-01532-SPO-DE

PATIENT
  Age: 32 Year
  Sex: Male
  Weight: 75 kg

DRUGS (6)
  1. GENOTROPIN [Concomitant]
  2. HYDROCORTISONE [Concomitant]
  3. TEGRETOL [Concomitant]
  4. ZONEGRAN [Suspect]
     Route: 048
     Dates: start: 20060301
  5. TESTOSTERONE [Concomitant]
  6. EUTHYROX [Concomitant]

REACTIONS (1)
  - SALIVARY GLAND CALCULUS [None]
